FAERS Safety Report 17566483 (Version 1)
Quarter: 2020Q1

REPORT INFORMATION
  Report Type: Report from Study
  Country: US (occurrence: US)
  Receive Date: 20200320
  Receipt Date: 20200320
  Transmission Date: 20200409
  Serious: Yes (Other)
  Sender: FDA-Public Use
  Company Number: US-MYLANLABS-2020M1030249

PATIENT
  Age: 48 Year
  Sex: Male

DRUGS (10)
  1. DEXAMETHASONE. [Suspect]
     Active Substance: DEXAMETHASONE
     Indication: GLOMERULONEPHRITIS PROLIFERATIVE
     Dosage: UNK
     Route: 065
  2. MYCOPHENOLATE MOFETIL. [Suspect]
     Active Substance: MYCOPHENOLATE MOFETIL
     Indication: GLOMERULONEPHRITIS PROLIFERATIVE
     Dosage: UNK
     Route: 065
  3. MYCOPHENOLATE MOFETIL. [Suspect]
     Active Substance: MYCOPHENOLATE MOFETIL
     Indication: MONOCLONAL GAMMOPATHY
  4. BORTEZOMIB. [Suspect]
     Active Substance: BORTEZOMIB
     Indication: MONOCLONAL GAMMOPATHY
  5. PREDNISONE. [Suspect]
     Active Substance: PREDNISONE
     Indication: MONOCLONAL GAMMOPATHY
  6. LENALIDOMIDE [Suspect]
     Active Substance: LENALIDOMIDE
     Indication: GLOMERULONEPHRITIS PROLIFERATIVE
     Dosage: RECEIVED 1 CYCLE
     Route: 065
  7. BORTEZOMIB. [Suspect]
     Active Substance: BORTEZOMIB
     Indication: GLOMERULONEPHRITIS PROLIFERATIVE
     Route: 065
  8. DEXAMETHASONE. [Suspect]
     Active Substance: DEXAMETHASONE
     Indication: MONOCLONAL GAMMOPATHY
  9. LENALIDOMIDE [Suspect]
     Active Substance: LENALIDOMIDE
     Indication: MONOCLONAL GAMMOPATHY
  10. PREDNISONE. [Suspect]
     Active Substance: PREDNISONE
     Indication: GLOMERULONEPHRITIS PROLIFERATIVE
     Dosage: UNK
     Route: 065

REACTIONS (1)
  - Therapy non-responder [Unknown]
